FAERS Safety Report 5049408-4 (Version None)
Quarter: 2006Q3

REPORT INFORMATION
  Report Type: 
  Country: None (occurrence: None)
  Receive Date: 20060711
  Receipt Date: 20060711
  Transmission Date: 20061208
  Serious: Yes (Hospitalization)
  Sender: FDA-Public Use
  Company Number: None

PATIENT
  Age: 57 Year
  Sex: Male
  Weight: 55 kg

DRUGS (10)
  1. BUSIPIRONE  10MG [Suspect]
     Indication: DYSPNOEA
     Dosage: SEE IMAGE
     Route: 048
     Dates: start: 20060522, end: 20060524
  2. BUSIPIRONE  10MG [Suspect]
     Indication: DYSPNOEA
     Dosage: SEE IMAGE
     Route: 048
     Dates: start: 20060525, end: 20060601
  3. TRAVASTAN GTT [Concomitant]
  4. ROBITUSSIN AC [Concomitant]
  5. VICODIN [Concomitant]
  6. IBUPROFEN [Concomitant]
  7. COMBIVENT [Concomitant]
  8. TESSALAN PERLE [Concomitant]
  9. MORPHINE SULFATE [Concomitant]
  10. . [Concomitant]

REACTIONS (2)
  - COUGH [None]
  - HAEMOPTYSIS [None]
